FAERS Safety Report 9130982 (Version 2)
Quarter: 2013Q2

REPORT INFORMATION
  Report Type: Spontaneous
  Country: US (occurrence: US)
  Receive Date: 20130301
  Receipt Date: 20130412
  Transmission Date: 20140414
  Serious: No
  Sender: FDA-Public Use
  Company Number: US-SHIRE-ALL1-2013-01254

PATIENT
  Sex: Male
  Weight: 100.9 kg

DRUGS (2)
  1. VYVANSE [Suspect]
     Indication: ATTENTION DEFICIT/HYPERACTIVITY DISORDER
     Dosage: 50 MG, UNKNOWN
     Route: 048
     Dates: end: 2013
  2. VYVANSE [Suspect]
     Dosage: UNK, UNKNOWN
     Route: 048
     Dates: start: 20100309

REACTIONS (2)
  - Liver function test abnormal [Unknown]
  - Hyperhidrosis [Not Recovered/Not Resolved]
